FAERS Safety Report 9148147 (Version 2)
Quarter: 2013Q3

REPORT INFORMATION
  Report Type: Spontaneous
  Country: US (occurrence: US)
  Receive Date: 20130308
  Receipt Date: 20130703
  Transmission Date: 20140515
  Serious: No
  Sender: FDA-Public Use
  Company Number: US-BIOGENIDEC-2013BI020496

PATIENT
  Sex: Female

DRUGS (3)
  1. TYSABRI [Suspect]
     Indication: MULTIPLE SCLEROSIS
     Route: 042
     Dates: start: 20070618, end: 20130321
  2. BENADRYL [Concomitant]
     Indication: PREMEDICATION
  3. TOPICAL CREAM [Concomitant]
     Indication: LOCAL ANAESTHESIA

REACTIONS (9)
  - Back pain [Recovered/Resolved]
  - Tremor [Recovered/Resolved]
  - Adverse drug reaction [Recovered/Resolved]
  - Crying [Recovered/Resolved]
  - Memory impairment [Recovered/Resolved with Sequelae]
  - Dysphemia [Recovered/Resolved]
  - Stress [Recovered/Resolved]
  - Emotional disorder [Unknown]
  - Fatigue [Recovered/Resolved]
